FAERS Safety Report 21440943 (Version 1)
Quarter: 2022Q4

REPORT INFORMATION
  Report Type: Report from Study
  Country: ES (occurrence: ES)
  Receive Date: 20221011
  Receipt Date: 20221011
  Transmission Date: 20230113
  Serious: Yes (Death)
  Sender: FDA-Public Use
  Company Number: ES-MYLANLABS-2022M1112984

PATIENT

DRUGS (3)
  1. PACLITAXEL [Suspect]
     Active Substance: PACLITAXEL
     Indication: Squamous cell carcinoma of head and neck
     Dosage: 80 MILLIGRAM/SQ. METER, QW
     Route: 042
  2. CETUXIMAB [Suspect]
     Active Substance: CETUXIMAB
     Indication: Squamous cell carcinoma of head and neck
     Dosage: 400 MILLIGRAM/SQ. METER, LOADING DOSE.
     Route: 042
  3. CETUXIMAB [Suspect]
     Active Substance: CETUXIMAB
     Dosage: 250 MILLIGRAM/SQ. METER, QW
     Route: 042

REACTIONS (4)
  - Neutropenia [Fatal]
  - Pneumonitis [Fatal]
  - Respiratory failure [Fatal]
  - Cytomegalovirus infection [Fatal]
